FAERS Safety Report 6204893-7 (Version None)
Quarter: 2009Q2

REPORT INFORMATION
  Report Type: 
  Country: None (occurrence: None)
  Receive Date: 20090527
  Receipt Date: 20071204
  Transmission Date: 20091009
  Serious: Yes (Life-Threatening, Hospitalization)
  Sender: FDA-Public Use
  Company Number: ES-MERCK-0712USA00790

PATIENT
  Age: 81 Year
  Sex: Female

DRUGS (8)
  1. MODURETIC 5-50 [Suspect]
     Indication: HYPERTENSION
     Route: 048
     Dates: start: 20070601, end: 20070924
  2. ACETAMINOPHEN [Suspect]
     Route: 042
     Dates: start: 20070919
  3. CEFAZOLIN SODIUM [Concomitant]
     Indication: ANTIBIOTIC PROPHYLAXIS
     Route: 030
     Dates: start: 20071002, end: 20071002
  4. DIPYRONE MAGNESIUM [Suspect]
     Route: 042
     Dates: start: 20070919
  5. DEPAKENE [Suspect]
     Indication: EPILEPSY
     Route: 048
     Dates: start: 20020101
  6. EUTIROX [Concomitant]
     Indication: HYPOTHYROIDISM
     Route: 048
     Dates: start: 20020101
  7. OMEPRAZOLE [Concomitant]
     Route: 042
  8. PARIET [Concomitant]
     Route: 048

REACTIONS (3)
  - DRUG INTERACTION [None]
  - HIP FRACTURE [None]
  - HYPONATRAEMIA [None]
